FAERS Safety Report 4268187-1 (Version None)
Quarter: 2004Q1

REPORT INFORMATION
  Report Type: 
  Country: None (occurrence: None)
  Receive Date: 20040109
  Receipt Date: 20031229
  Transmission Date: 20041129
  Serious: Yes (Hospitalization)
  Sender: FDA-Public Use
  Company Number: WAES 0312SWE00017

PATIENT
  Age: 50 Year
  Sex: Male

DRUGS (3)
  1. CYCLOPENTOLATE HYDROCHLORIDE [Suspect]
     Indication: RETINAL DETACHMENT
     Route: 047
     Dates: start: 20030729, end: 20030730
  2. DEXAMETHASONE [Concomitant]
  3. COSOPT [Suspect]
     Indication: RETINAL DETACHMENT
     Route: 047
     Dates: start: 20030729, end: 20030730

REACTIONS (2)
  - VENTRICULAR FIBRILLATION [None]
  - VENTRICULAR TACHYCARDIA [None]
